FAERS Safety Report 4980796-0 (Version None)
Quarter: 2006Q2

REPORT INFORMATION
  Report Type: 
  Country: None (occurrence: None)
  Receive Date: 20060424
  Receipt Date: 20051006
  Transmission Date: 20061013
  Serious: Yes (Death)
  Sender: FDA-Public Use
  Company Number: US-MERCK-0510USA05950

PATIENT
  Sex: Female

DRUGS (2)
  1. VIOXX [Suspect]
     Route: 048
     Dates: start: 20030401, end: 20030922
  2. ASPIRIN [Concomitant]
     Indication: PROPHYLAXIS
     Route: 065

REACTIONS (1)
  - MYOCARDIAL INFARCTION [None]
